FAERS Safety Report 16903828 (Version 1)
Quarter: 2019Q4

REPORT INFORMATION
  Report Type: Spontaneous
  Country: US (occurrence: US)
  Receive Date: 20191009
  Receipt Date: 20191009
  Transmission Date: 20200122
  Serious: No
  Sender: FDA-Public Use
  Company Number: None

PATIENT
  Age: 3 Year
  Sex: Male

DRUGS (10)
  1. KALYDECO [Suspect]
     Active Substance: IVACAFTOR
     Indication: CYSTIC FIBROSIS
     Route: 048
  2. ALBUTEROL MDI AND NEB [Concomitant]
  3. FLONASE NS [Concomitant]
  4. CREON 6,000 [Concomitant]
  5. HYPER SAL 3% NEBS [Concomitant]
  6. CETIRIZINE 1MG/ML [Concomitant]
  7. ONDANSETRON 4MG [Concomitant]
     Active Substance: ONDANSETRON
  8. MVW MULTIVITAMIN [Concomitant]
  9. AMITIZA 8MCG [Concomitant]
  10. NEXIUM 20MG PKT [Concomitant]

REACTIONS (1)
  - Upper respiratory tract infection [None]

NARRATIVE: CASE EVENT DATE: 20191009
